FAERS Safety Report 9358632 (Version 4)
Quarter: 2014Q4

REPORT INFORMATION
  Report Type: Spontaneous
  Country: US (occurrence: US)
  Receive Date: 20130620
  Receipt Date: 20141029
  Transmission Date: 20150529
  Serious: Yes (Hospitalization, Other)
  Sender: FDA-Public Use
  Company Number: US-GLAXOSMITHKLINE-A1027450A

PATIENT
  Age: 69 Year
  Sex: Male

DRUGS (39)
  1. KLOR-CON [Concomitant]
     Active Substance: POTASSIUM CHLORIDE
  2. OSCAL [Concomitant]
     Active Substance: CALCIUM CARBONATE
  3. CETAPHIL [Concomitant]
     Active Substance: AVOBENZONE\OCTOCRYLENE\TRICLOSAN
  4. BACLOFEN. [Concomitant]
     Active Substance: BACLOFEN
  5. ALBUTEROL. [Concomitant]
     Active Substance: ALBUTEROL
  6. OXYCODONE [Concomitant]
     Active Substance: OXYCODONE
  7. DOXYCYCLINE. [Concomitant]
     Active Substance: DOXYCYCLINE
  8. KETAMINE [Concomitant]
     Active Substance: KETAMINE
  9. NITROQUICK [Concomitant]
     Active Substance: NITROGLYCERIN
  10. QUINAPRIL [Concomitant]
     Active Substance: QUINAPRIL\QUINAPRIL HYDROCHLORIDE
  11. PREDNISONE. [Concomitant]
     Active Substance: PREDNISONE
  12. BIPAP [Concomitant]
     Active Substance: DEVICE
  13. COMBIVENT [Concomitant]
     Active Substance: ALBUTEROL SULFATE\IPRATROPIUM BROMIDE
  14. MELOXICAM. [Concomitant]
     Active Substance: MELOXICAM
  15. GABAPENTIN. [Concomitant]
     Active Substance: GABAPENTIN
  16. TRIMIX [Concomitant]
     Active Substance: ALPROSTADIL\PAPAVERINE\PHENTOLAMINE
  17. VITAMIN D3 [Concomitant]
     Active Substance: CHOLECALCIFEROL
  18. ADVAIR HFA [Suspect]
     Active Substance: FLUTICASONE PROPIONATE\SALMETEROL XINAFOATE
     Indication: CHRONIC OBSTRUCTIVE PULMONARY DISEASE
     Dosage: 500/50
     Route: 055
     Dates: start: 2003
  19. MULTIVITAMIN [Concomitant]
     Active Substance: VITAMINS
  20. ASPIRIN. [Concomitant]
     Active Substance: ASPIRIN
  21. CEPHALEXIN. [Concomitant]
     Active Substance: CEPHALEXIN
  22. UNSPECIFIED MEDICATION [Concomitant]
     Active Substance: UNSPECIFIED INGREDIENT
  23. STOOL SOFTENER [Concomitant]
     Active Substance: DOCUSATE CALCIUM
  24. LIDOCAINE. [Concomitant]
     Active Substance: LIDOCAINE
  25. LYRICA [Concomitant]
     Active Substance: PREGABALIN
  26. MOLASSES [Concomitant]
  27. GLUCOSAMINE [Concomitant]
     Active Substance: GLUCOSAMINE
  28. POLYVINYL ALCOHOL [Concomitant]
     Active Substance: POLYVINYL ALCOHOL
  29. ADVAIR HFA [Suspect]
     Active Substance: FLUTICASONE PROPIONATE\SALMETEROL XINAFOATE
     Indication: BRONCHITIS CHRONIC
     Dates: start: 2003
  30. FUROSEMIDE. [Concomitant]
     Active Substance: FUROSEMIDE
  31. CLONAZEPAM. [Concomitant]
     Active Substance: CLONAZEPAM
  32. SIMVASTATIN. [Concomitant]
     Active Substance: SIMVASTATIN
  33. ACETONIDE TRIAMCINOLONE [Concomitant]
  34. DULCOLAX [Concomitant]
     Active Substance: BISACODYL OR DOCUSATE SODIUM
  35. LEVITRA [Concomitant]
     Active Substance: VARDENAFIL HYDROCHLORIDE TRIHYDRATE
  36. IPRATROPIUM [Concomitant]
     Active Substance: IPRATROPIUM
  37. OXYGEN. [Concomitant]
     Active Substance: OXYGEN
  38. REFRESH [Concomitant]
     Active Substance: UNSPECIFIED INGREDIENT
  39. CYCLOBENZAPRINE [Concomitant]
     Active Substance: CYCLOBENZAPRINE

REACTIONS (13)
  - Cough [Not Recovered/Not Resolved]
  - Retching [Not Recovered/Not Resolved]
  - Loss of consciousness [Recovered/Resolved]
  - Drug ineffective [Unknown]
  - Abnormal behaviour [Recovering/Resolving]
  - Feeling abnormal [Recovering/Resolving]
  - Product quality issue [Unknown]
  - Chronic obstructive pulmonary disease [Recovering/Resolving]
  - Dyspnoea [Recovering/Resolving]
  - Musculoskeletal disorder [Recovering/Resolving]
  - Mobility decreased [Recovering/Resolving]
  - Malaise [Recovering/Resolving]
  - Off label use [Unknown]

NARRATIVE: CASE EVENT DATE: 201305
